FAERS Safety Report 6847199-5 (Version None)
Quarter: 2010Q3

REPORT INFORMATION
  Report Type: 
  Country: None (occurrence: None)
  Receive Date: 20100716
  Receipt Date: 20100702
  Transmission Date: 20110219
  Serious: Yes (Hospitalization, Other)
  Sender: FDA-Public Use
  Company Number: IT-PAR PHARMACEUTICAL, INC-2010SCPR001392

PATIENT

DRUGS (1)
  1. RISPERIDONE [Suspect]
     Indication: COMPULSIVE SEXUAL BEHAVIOUR
     Dosage: 1 MG, QD
     Route: 065

REACTIONS (3)
  - BARRETT'S OESOPHAGUS [None]
  - GASTRODUODENAL ULCER [None]
  - HYPERPROLACTINAEMIA [None]
